FAERS Safety Report 8395044-1 (Version None)
Quarter: 2012Q2

REPORT INFORMATION
  Report Type: 
  Country: None (occurrence: None)
  Receive Date: 20120530
  Receipt Date: 20120521
  Transmission Date: 20120825
  Serious: Yes (Hospitalization)
  Sender: FDA-Public Use
  Company Number: JP-VERTEX PHARMACEUTICALS INC.-AE-2012-007326

PATIENT
  Age: 68 Year
  Sex: Female

DRUGS (6)
  1. TELAVIC (TELAPREVIR) [Suspect]
     Indication: HEPATITIS C
     Route: 048
     Dates: start: 20120502, end: 20120506
  2. OLMESARTAN MEDOXOMIL [Concomitant]
     Route: 048
     Dates: start: 20120502, end: 20120507
  3. KETOPROFEN [Concomitant]
     Route: 061
     Dates: start: 20120503
  4. REBETOL [Concomitant]
     Indication: HEPATITIS C
     Route: 048
     Dates: start: 20120502, end: 20120506
  5. ADALAT CC [Concomitant]
     Route: 048
     Dates: start: 20120502, end: 20120507
  6. PEG-INTRON [Concomitant]
     Indication: HEPATITIS C
     Route: 051
     Dates: start: 20120502, end: 20120502

REACTIONS (2)
  - NAUSEA [None]
  - RENAL IMPAIRMENT [None]
